FAERS Safety Report 19581594 (Version 2)
Quarter: 2021Q3

REPORT INFORMATION
  Report Type: Report from Study
  Country: GB (occurrence: GB)
  Receive Date: 20210720
  Receipt Date: 20210723
  Transmission Date: 20211014
  Serious: Yes (Hospitalization)
  Sender: FDA-Public Use
  Company Number: GB-AMGEN-GBRSL2021108778

PATIENT
  Age: 62 Year
  Sex: Female

DRUGS (1)
  1. AMGEVITA [Suspect]
     Active Substance: ADALIMUMAB
     Indication: PSORIATIC ARTHROPATHY
     Dosage: 40 MILLIGRAM, Q2WK
     Route: 065
     Dates: start: 2021

REACTIONS (9)
  - Candida infection [Unknown]
  - Vulvovaginal erythema [Unknown]
  - Muscular weakness [Unknown]
  - Migraine [Not Recovered/Not Resolved]
  - Vulvovaginal swelling [Unknown]
  - Vaginal haemorrhage [Unknown]
  - Inflammation [Unknown]
  - Depression [Unknown]
  - Gingival pain [Unknown]
